FAERS Safety Report 13779576 (Version 1)
Quarter: 2017Q3

REPORT INFORMATION
  Report Type: Report from Study
  Country: US (occurrence: US)
  Receive Date: 20170721
  Receipt Date: 20170721
  Transmission Date: 20171127
  Serious: Yes (Other)
  Sender: FDA-Public Use
  Company Number: US-ACTELION-A-NJ2017-156947

PATIENT
  Age: 79 Year
  Sex: Female

DRUGS (11)
  1. PREDNISONE. [Concomitant]
     Active Substance: PREDNISONE
  2. MEMANTINE. [Concomitant]
     Active Substance: MEMANTINE
  3. ELIQUIS [Concomitant]
     Active Substance: APIXABAN
  4. ZAROXOLYN [Concomitant]
     Active Substance: METOLAZONE
  5. IBERET FOLIC [Concomitant]
  6. CALCIUM [Concomitant]
     Active Substance: CALCIUM
  7. ALDACTONE [Concomitant]
     Active Substance: SPIRONOLACTONE
  8. LACTULOSE. [Concomitant]
     Active Substance: LACTULOSE
  9. DILTIAZEM. [Concomitant]
     Active Substance: DILTIAZEM
  10. OPSUMIT [Suspect]
     Active Substance: MACITENTAN
     Indication: PULMONARY ARTERIAL HYPERTENSION
     Dosage: 10 MG, QD
     Route: 048
     Dates: start: 20161004
  11. SENEXON-S [Concomitant]
     Active Substance: DOCUSATE SODIUM\SENNOSIDES A AND B

REACTIONS (3)
  - Oedema peripheral [Not Recovered/Not Resolved]
  - Thyroid mass [Not Recovered/Not Resolved]
  - Cerebral infarction [Not Recovered/Not Resolved]

NARRATIVE: CASE EVENT DATE: 20170701
